FAERS Safety Report 13405439 (Version 1)
Quarter: 2017Q2

REPORT INFORMATION
  Report Type: Spontaneous
  Country: US (occurrence: US)
  Receive Date: 20170405
  Receipt Date: 20170405
  Transmission Date: 20170830
  Serious: Yes (Other)
  Sender: FDA-Public Use
  Company Number: US-PFIZER INC-2017142220

PATIENT
  Age: 62 Year
  Sex: Male
  Weight: 87.9 kg

DRUGS (1)
  1. VIAGRA [Suspect]
     Active Substance: SILDENAFIL CITRATE
     Indication: ERECTILE DYSFUNCTION
     Dosage: 100 MG ONE TABLET, AS NEEDED
     Route: 048

REACTIONS (1)
  - Small cell lung cancer [Recovered/Resolved]

NARRATIVE: CASE EVENT DATE: 201610
